FAERS Safety Report 20164573 (Version 1)
Quarter: 2021Q4

REPORT INFORMATION
  Report Type: Spontaneous
  Country: US (occurrence: None)
  Receive Date: 20211208
  Receipt Date: 20211208
  Transmission Date: 20220304
  Serious: No
  Sender: FDA-Public Use
  Company Number: None

PATIENT
  Sex: Male
  Weight: 77.11 kg

DRUGS (12)
  1. LORBRENA [Suspect]
     Active Substance: LORLATINIB
     Indication: Lung neoplasm malignant
     Dosage: FREQUENCY : DAILY;?
     Route: 048
     Dates: start: 20211014
  2. CRESTOR [Concomitant]
  3. ELIQUIS [Concomitant]
  4. MULTIPLEVITAMIN [Concomitant]
  5. FUROSEMIDE [Concomitant]
  6. LUPRON [Concomitant]
  7. METFORMIN [Concomitant]
  8. NIFEDIPINE [Concomitant]
  9. PROCRIT [Concomitant]
  10. PRUNE JUICE [Concomitant]
  11. ROSUVASTATIN [Concomitant]
  12. VIMPAT [Concomitant]

REACTIONS (3)
  - Blood cholesterol increased [None]
  - Tic [None]
  - Dyskinesia [None]
